FAERS Safety Report 26117515 (Version 1)
Quarter: 2025Q4

REPORT INFORMATION
  Report Type: Report from Study
  Country: US (occurrence: US)
  Receive Date: 20251203
  Receipt Date: 20251203
  Transmission Date: 20260119
  Serious: Yes (Hospitalization)
  Sender: EISAI
  Company Number: US-Eisai-EC-2025-200406

PATIENT
  Age: 65 Year
  Sex: Female
  Weight: 68.18 kg

DRUGS (10)
  1. LENVIMA [Suspect]
     Active Substance: LENVATINIB
     Indication: Renal cancer
     Route: 048
     Dates: start: 20251110
  2. LENVIMA [Suspect]
     Active Substance: LENVATINIB
     Route: 048
     Dates: start: 20251124, end: 20251124
  3. KEYTRUDA [Concomitant]
     Active Substance: PEMBROLIZUMAB
     Indication: Product used for unknown indication
     Dosage: DOSE AND FREQUENCY UNKNOWN (DOSE 100 MG/4ML VIAL)
     Route: 042
  4. CLARITIN [Concomitant]
     Active Substance: LORATADINE
  5. ESTRADIOL [Concomitant]
     Active Substance: ESTRADIOL
  6. CRANBERRY [Concomitant]
     Active Substance: CRANBERRY
  7. DEMANNOSE [Concomitant]
     Active Substance: DEMANNOSE
  8. SODIUM CHLORIDE [Concomitant]
     Active Substance: SODIUM CHLORIDE
  9. OXCARBAZEPINE [Concomitant]
     Active Substance: OXCARBAZEPINE
  10. ZYRTEC [Concomitant]
     Active Substance: CETIRIZINE HYDROCHLORIDE

REACTIONS (4)
  - Blood sodium decreased [Unknown]
  - Headache [Unknown]
  - Hepatic enzyme increased [Unknown]
  - Neutropenia [Unknown]

NARRATIVE: CASE EVENT DATE: 20251101
